FAERS Safety Report 15996309 (Version 1)
Quarter: 2019Q1

REPORT INFORMATION
  Report Type: Spontaneous
  Country: US (occurrence: US)
  Receive Date: 20190222
  Receipt Date: 20190222
  Transmission Date: 20190418
  Serious: Yes (Other)
  Sender: FDA-Public Use
  Company Number: None

PATIENT
  Age: 61 Year
  Sex: Male
  Weight: 74.25 kg

DRUGS (2)
  1. CLONAZEPAM 1 MG SOLCO HC NDC 43547-407-10 [Suspect]
     Active Substance: CLONAZEPAM
     Indication: POST-TRAUMATIC STRESS DISORDER
     Dosage: ?          QUANTITY:1 TABLET(S);?
     Route: 048
  2. CLONAZEPAM 1 MG SOLCO HC NDC 43547-407-10 [Suspect]
     Active Substance: CLONAZEPAM
     Indication: ANXIETY DISORDER
     Dosage: ?          QUANTITY:1 TABLET(S);?
     Route: 048

REACTIONS (5)
  - Withdrawal syndrome [None]
  - Product substitution issue [None]
  - Drug hypersensitivity [None]
  - Rash [None]
  - Drug ineffective [None]

NARRATIVE: CASE EVENT DATE: 20190110
